FAERS Safety Report 12960416 (Version 3)
Quarter: 2016Q4

REPORT INFORMATION
  Report Type: Spontaneous
  Country: US (occurrence: US)
  Receive Date: 20161121
  Receipt Date: 20161206
  Transmission Date: 20170207
  Serious: No
  Sender: FDA-Public Use
  Company Number: US-MALLINCKRODT-T201602286

PATIENT
  Sex: Female
  Weight: 51 kg

DRUGS (2)
  1. FENTANYL CITRATE. [Suspect]
     Active Substance: FENTANYL CITRATE
     Dosage: 4 OF THE 400 MCG DAILY
     Route: 048
     Dates: start: 2004
  2. FENTANYL CITRATE. [Suspect]
     Active Substance: FENTANYL CITRATE
     Indication: PAIN
     Dosage: 800 MCG ONCE DAILY IF NEEDED
     Route: 048
     Dates: start: 2004

REACTIONS (2)
  - Endodontic procedure [Unknown]
  - Tooth disorder [Unknown]
